FAERS Safety Report 5141684-2 (Version None)
Quarter: 2006Q4

REPORT INFORMATION
  Report Type: 
  Country: None (occurrence: None)
  Receive Date: 20061026
  Receipt Date: 20061020
  Transmission Date: 20070319
  Serious: Yes (Hospitalization)
  Sender: FDA-Public Use
  Company Number: 2006P1000451

PATIENT
  Age: 70 Year
  Sex: Female
  Weight: 65 kg

DRUGS (10)
  1. RETEPLASE  (RETEPLASE) [Suspect]
     Indication: ACUTE MYOCARDIAL INFARCTION
     Dosage: IV
     Route: 042
     Dates: start: 20060915
  2. ABCIXIMAB (ABCIXIMAB) [Suspect]
     Indication: ACUTE MYOCARDIAL INFARCTION
     Dosage: IV
     Route: 042
     Dates: start: 20060915
  3. PERINDOPRIL ERBUMINE [Concomitant]
  4. ACETYLSALICYLATE [Concomitant]
  5. CALCIUM [Concomitant]
  6. CLOPIDOGREL [Concomitant]
  7. CHOLESTEROL- AND TRIGLYCERIDE REDUCERS [Concomitant]
  8. FUROSEMIDE [Concomitant]
  9. PANTOPRAZOLE SODIUM [Concomitant]
  10. METOPROLOL TARTRATE [Concomitant]

REACTIONS (4)
  - ANGINA PECTORIS [None]
  - C-REACTIVE PROTEIN INCREASED [None]
  - CHEST PAIN [None]
  - WHITE BLOOD CELL COUNT INCREASED [None]
